FAERS Safety Report 4465649-9 (Version None)
Quarter: 2004Q3

REPORT INFORMATION
  Report Type: 
  Country: None (occurrence: None)
  Receive Date: 20040930
  Receipt Date: 20040913
  Transmission Date: 20050211
  Serious: Yes (Life-Threatening, Hospitalization)
  Sender: FDA-Public Use
  Company Number: M2004-1338

PATIENT
  Age: 82 Year
  Sex: Male

DRUGS (13)
  1. DICLOFENAC 75MG [Suspect]
     Dosage: 75MG DAILY
     Dates: start: 19940101, end: 20040818
  2. WARFARIN SODIUM [Suspect]
     Indication: DEEP VEIN THROMBOSIS
     Dosage: 5MG DAILY
     Dates: start: 20020401, end: 20040818
  3. GLIPIZIDE [Concomitant]
  4. FENTANYL [Concomitant]
  5. BICALUTAMIDE [Concomitant]
  6. PARACETAMOL [Concomitant]
  7. CARBAMAZEPINE [Concomitant]
  8. AMITRIPTYLINE HCL [Concomitant]
  9. NOCTE [Concomitant]
  10. DIAZEPAM [Concomitant]
  11. QUININE SULPHATE [Concomitant]
  12. FUROSEMIDE [Concomitant]
  13. CIMETIDINE [Concomitant]

REACTIONS (4)
  - DRUG INTERACTION [None]
  - GASTRIC HAEMORRHAGE [None]
  - INTERNATIONAL NORMALISED RATIO INCREASED [None]
  - MALLORY-WEISS SYNDROME [None]
